FAERS Safety Report 5065383-0 (Version None)
Quarter: 2006Q3

REPORT INFORMATION
  Report Type: 
  Country: None (occurrence: None)
  Receive Date: 20060725
  Receipt Date: 20060712
  Transmission Date: 20061208
  Serious: Yes (Hospitalization)
  Sender: FDA-Public Use
  Company Number: 2006087261

PATIENT
  Age: 67 Year
  Sex: Female

DRUGS (1)
  1. SULPERAZON (SULBACTAM, CEFOPERAZONE) [Suspect]
     Indication: PYREXIA
     Dosage: 1 GRAM, INTRAVENOUS
     Route: 042
     Dates: start: 20060624

REACTIONS (1)
  - ANAPHYLACTIC SHOCK [None]
